FAERS Safety Report 8511469-5 (Version None)
Quarter: 2012Q3

REPORT INFORMATION
  Report Type: 
  Country: None (occurrence: None)
  Receive Date: 20120716
  Receipt Date: 20120706
  Transmission Date: 20120928
  Serious: Yes (Hospitalization, Other)
  Sender: FDA-Public Use
  Company Number: FR-VERTEX PHARMACEUTICALS INC.-AE-2011-000454

PATIENT
  Sex: Female
  Weight: 82 kg

DRUGS (13)
  1. ALDACTAZINE [Concomitant]
     Indication: HYPERTENSION
  2. RIBAVIRIN [Concomitant]
     Route: 048
     Dates: start: 20110822, end: 20110912
  3. RIBAVIRIN [Concomitant]
     Route: 048
     Dates: start: 20110913, end: 20110913
  4. LEVEMIR [Concomitant]
     Indication: DIABETES MELLITUS
  5. CYTOMEL [Concomitant]
     Indication: HYPOTHYROIDISM
  6. VX-950 [Suspect]
     Indication: HEPATITIS C
     Route: 048
     Dates: start: 20110523, end: 20110815
  7. RIBAVIRIN [Concomitant]
     Route: 048
     Dates: start: 20110718
  8. POTASSIUM CHLORIDE [Concomitant]
     Indication: HYPOKALAEMIA
  9. PANTOPRAZOLE [Concomitant]
     Indication: GASTROOESOPHAGEAL REFLUX DISEASE
  10. PEGINTERFERON ALFA-2A [Concomitant]
     Indication: HEPATITIS C
     Route: 058
     Dates: start: 20110523
  11. PEGINTERFERON ALFA-2A [Concomitant]
     Route: 058
     Dates: start: 20110822
  12. PROPRANOLOL [Concomitant]
     Indication: VARICES OESOPHAGEAL
  13. RIBAVIRIN [Concomitant]
     Indication: HEPATITIS C
     Route: 048
     Dates: start: 20110523

REACTIONS (6)
  - TREMOR [None]
  - CONFUSIONAL STATE [None]
  - ANAEMIA [None]
  - ASTHENIA [None]
  - LEUKOPENIA [None]
  - THROMBOCYTOPENIA [None]
